FAERS Safety Report 12268844 (Version 4)
Quarter: 2016Q3

REPORT INFORMATION
  Report Type: Report from Study
  Country: CA (occurrence: CA)
  Receive Date: 20160414
  Receipt Date: 20160718
  Transmission Date: 20161109
  Serious: Yes (Death, Hospitalization)
  Sender: FDA-Public Use
  Company Number: CA-BIOGEN-2016BI00218546

PATIENT
  Age: 58 Year
  Sex: Female

DRUGS (6)
  1. TECFIDERA [Suspect]
     Active Substance: DIMETHYL FUMARATE
     Route: 048
     Dates: start: 20150920, end: 20150926
  2. TECFIDERA [Suspect]
     Active Substance: DIMETHYL FUMARATE
     Dosage: QPM
     Route: 048
     Dates: start: 20150927, end: 20151003
  3. TECFIDERA [Suspect]
     Active Substance: DIMETHYL FUMARATE
     Indication: MULTIPLE SCLEROSIS
     Route: 048
     Dates: start: 20150913, end: 20150919
  4. TECFIDERA [Suspect]
     Active Substance: DIMETHYL FUMARATE
     Dosage: QAM
     Route: 048
     Dates: start: 20150927, end: 20151003
  5. FAMPYRA [Suspect]
     Active Substance: DALFAMPRIDINE
     Indication: PRODUCT USED FOR UNKNOWN INDICATION
     Route: 065
     Dates: end: 201509
  6. TECFIDERA [Suspect]
     Active Substance: DIMETHYL FUMARATE
     Route: 048
     Dates: start: 20151004, end: 20160311

REACTIONS (3)
  - Underdose [Recovered/Resolved]
  - Viral myocarditis [Fatal]
  - Multiple sclerosis [Fatal]

NARRATIVE: CASE EVENT DATE: 20150913
